FAERS Safety Report 7875663-9 (Version None)
Quarter: 2011Q4

REPORT INFORMATION
  Report Type: 
  Country: None (occurrence: None)
  Receive Date: 20111031
  Receipt Date: 20111020
  Transmission Date: 20120403
  Serious: Yes (Hospitalization)
  Sender: FDA-Public Use
  Company Number: US-JNJFOC-20111000260

PATIENT
  Sex: Female
  Weight: 39.2 kg

DRUGS (7)
  1. PREDNISONE [Concomitant]
  2. ANTIBIOTICS [Concomitant]
     Indication: INFLAMMATORY BOWEL DISEASE
     Route: 048
  3. INFLIXIMAB, RECOMBINANT [Suspect]
     Indication: CROHN'S DISEASE
     Route: 042
     Dates: start: 20091101, end: 20100616
  4. HUMIRA [Concomitant]
     Dates: start: 20100719
  5. OMEPRAZOLE [Concomitant]
  6. FERROUS SULFATE TAB [Concomitant]
  7. MULTI-VITAMINS [Concomitant]

REACTIONS (1)
  - CROHN'S DISEASE [None]
